FAERS Safety Report 12070782 (Version 1)
Quarter: 2016Q1

REPORT INFORMATION
  Report Type: Spontaneous
  Country: US (occurrence: US)
  Receive Date: 20160211
  Receipt Date: 20160211
  Transmission Date: 20160526
  Serious: No
  Sender: FDA-Public Use
  Company Number: US-BAYER-2016-018642

PATIENT
  Age: 46 Year
  Sex: Female

DRUGS (2)
  1. FINACEA [Suspect]
     Active Substance: AZELAIC ACID
     Indication: ROSACEA
     Dosage: UNK UNK, BID
     Dates: start: 2013, end: 201601
  2. FINACEA [Suspect]
     Active Substance: AZELAIC ACID
     Indication: ROSACEA
     Dosage: UNK

REACTIONS (2)
  - Unevaluable event [None]
  - Erythema [None]

NARRATIVE: CASE EVENT DATE: 201601
